FAERS Safety Report 25812605 (Version 3)
Quarter: 2025Q4

REPORT INFORMATION
  Report Type: Spontaneous
  Country: JP (occurrence: JP)
  Receive Date: 20250917
  Receipt Date: 20251001
  Transmission Date: 20260118
  Serious: Yes (Hospitalization, Other)
  Sender: MERCK SHARP & DOHME LLC
  Company Number: JP-009507513-2329364

PATIENT
  Age: 17 Year
  Sex: Female

DRUGS (4)
  1. PREVYMIS [Suspect]
     Active Substance: LETERMOVIR
     Route: 065
  2. NOXAFIL [Suspect]
     Active Substance: POSACONAZOLE
     Route: 042
  3. NOXAFIL [Suspect]
     Active Substance: POSACONAZOLE
     Route: 042
  4. ACYCLOVIR [Concomitant]
     Active Substance: ACYCLOVIR

REACTIONS (7)
  - Pulmonary mucormycosis [Unknown]
  - Hypokalaemia [Recovering/Resolving]
  - Acute graft versus host disease [Unknown]
  - Pulmonary oedema [Unknown]
  - Engraftment syndrome [Unknown]
  - Procedural complication [Unknown]
  - Hospitalisation [Recovered/Resolved]
